FAERS Safety Report 14333241 (Version 1)
Quarter: 2017Q4

REPORT INFORMATION
  Report Type: Spontaneous
  Country: US (occurrence: US)
  Receive Date: 20171228
  Receipt Date: 20171228
  Transmission Date: 20180321
  Serious: No
  Sender: FDA-Public Use
  Company Number: US-NEPHRON STERILE COMPOUNDING CENTER-2037914

PATIENT
  Age: 60 Year
  Sex: Male
  Weight: 121.6 kg

DRUGS (11)
  1. KETAMINE HYDROCHLORIDE. [Concomitant]
     Active Substance: KETAMINE HYDROCHLORIDE
  2. HYDROMORPHONE HCL [Concomitant]
     Active Substance: HYDROMORPHONE HYDROCHLORIDE
  3. LACTATED RINGERS SOLUTION [Concomitant]
     Active Substance: CALCIUM CHLORIDE\POTASSIUM CHLORIDE\SODIUM CHLORIDE\SODIUM LACTATE
  4. FENTANYL. [Concomitant]
     Active Substance: FENTANYL
  5. LIDOCAINE. [Concomitant]
     Active Substance: LIDOCAINE
  6. PROPOFOL. [Concomitant]
     Active Substance: PROPOFOL
  7. DECADRON [Concomitant]
     Active Substance: DEXAMETHASONE
  8. ZOFRAN [Concomitant]
     Active Substance: ONDANSETRON HYDROCHLORIDE
  9. SUCCINYLCHOLINE CHLORIDE. [Suspect]
     Active Substance: SUCCINYLCHOLINE CHLORIDE
     Indication: SURGERY
     Route: 042
     Dates: start: 20171214, end: 20171214
  10. ROCURONIUM [Concomitant]
     Active Substance: ROCURONIUM BROMIDE
  11. EPHEDRINE. [Concomitant]
     Active Substance: EPHEDRINE

REACTIONS (1)
  - Drug ineffective [Recovered/Resolved]

NARRATIVE: CASE EVENT DATE: 20171214
